FAERS Safety Report 13208106 (Version 1)
Quarter: 2017Q1

REPORT INFORMATION
  Report Type: Report from Study
  Country: None (occurrence: DE)
  Receive Date: 20170209
  Receipt Date: 20170209
  Transmission Date: 20170428
  Serious: Yes (Hospitalization)
  Sender: FDA-Public Use
  Company Number: DE-ABBVIE-17K-062-1865271-00

PATIENT
  Age: 72 Year
  Sex: Female

DRUGS (7)
  1. MABTHERA [Concomitant]
     Active Substance: RITUXIMAB
     Dates: start: 200807, end: 200807
  2. MTX [Concomitant]
     Active Substance: METHOTREXATE SODIUM
     Indication: PRODUCT USED FOR UNKNOWN INDICATION
     Dates: start: 200707
  3. MABTHERA [Concomitant]
     Active Substance: RITUXIMAB
     Dates: start: 201506, end: 201506
  4. HUMIRA [Suspect]
     Active Substance: ADALIMUMAB
     Indication: PRODUCT USED FOR UNKNOWN INDICATION
     Route: 058
     Dates: start: 200607, end: 200707
  5. MABTHERA [Concomitant]
     Active Substance: RITUXIMAB
     Indication: PRODUCT USED FOR UNKNOWN INDICATION
     Dates: start: 200708, end: 200708
  6. MABTHERA [Concomitant]
     Active Substance: RITUXIMAB
     Dates: start: 201101, end: 201101
  7. MABTHERA [Concomitant]
     Active Substance: RITUXIMAB
     Dates: start: 201308, end: 201308

REACTIONS (1)
  - Spinal column stenosis [Unknown]

NARRATIVE: CASE EVENT DATE: 20160605
